FAERS Safety Report 8222493-4 (Version None)
Quarter: 2012Q1

REPORT INFORMATION
  Report Type: 
  Country: None (occurrence: None)
  Receive Date: 20120320
  Receipt Date: 20120314
  Transmission Date: 20120608
  Serious: Yes (Death, Other)
  Sender: FDA-Public Use
  Company Number: PHHY2012VE021106

PATIENT
  Sex: Female

DRUGS (5)
  1. JANUVIA [Concomitant]
     Indication: DIABETES MELLITUS
     Dosage: 50 MG, QD
  2. BENICAR [Concomitant]
     Indication: HYPERTENSION
     Dosage: 20 MG, QD
  3. EXELON [Suspect]
     Dosage: UNK
     Route: 062
     Dates: start: 20100101
  4. VITAMINS NOS [Concomitant]
  5. ASPIRIN [Concomitant]
     Dosage: 81 MG, QD

REACTIONS (12)
  - MALNUTRITION [None]
  - APHAGIA [None]
  - THROMBOCYTOSIS [None]
  - PLEURAL DISORDER [None]
  - GENERAL PHYSICAL HEALTH DETERIORATION [None]
  - DYSPNOEA [None]
  - LUNG INFECTION [None]
  - BRONCHIAL DISORDER [None]
  - PNEUMONIA [None]
  - HYPOTENSION [None]
  - PLEURAL EFFUSION [None]
  - OBSTRUCTIVE AIRWAYS DISORDER [None]
